FAERS Safety Report 9874687 (Version 1)
Quarter: 2014Q1

REPORT INFORMATION
  Report Type: Spontaneous
  Country: ES (occurrence: ES)
  Receive Date: 20140206
  Receipt Date: 20140206
  Transmission Date: 20141002
  Serious: Yes (Death, Hospitalization)
  Sender: FDA-Public Use
  Company Number: PHHY2014ES013154

PATIENT
  Age: 66 Year
  Sex: Female

DRUGS (2)
  1. EXJADE [Suspect]
     Indication: HAEMOCHROMATOSIS
     Dosage: 500 MG
     Route: 048
     Dates: start: 20140109
  2. LENALIDOMIDE [Suspect]
     Indication: MYELODYSPLASTIC SYNDROME
     Dosage: 10 MG
     Route: 048
     Dates: start: 20140109

REACTIONS (4)
  - Pancreatitis acute [Fatal]
  - Pancreatic necrosis [Fatal]
  - Gastrointestinal necrosis [Fatal]
  - Abdominal sepsis [Fatal]
